FAERS Safety Report 9750171 (Version 1)
Quarter: 2013Q4

REPORT INFORMATION
  Report Type: Spontaneous
  Country: US (occurrence: US)
  Receive Date: 20131212
  Receipt Date: 20131212
  Transmission Date: 20140711
  Serious: Yes (Other)
  Sender: FDA-Public Use
  Company Number: PHEH2013US025525

PATIENT
  Sex: Male

DRUGS (6)
  1. MYFORTIC [Suspect]
     Dosage: UNK UKN, UNK
  2. NEORAL [Suspect]
     Dosage: UNK UKN, UNK
  3. LIPITOR [Suspect]
     Dosage: UNK UKN, UNK
  4. ASPIRIN [Suspect]
     Dosage: UNK UKN, UNK
  5. CELEXA [Suspect]
     Dosage: UNK UKN, UNK
  6. PLAVIX [Suspect]
     Dosage: UNK UKN, UNK

REACTIONS (1)
  - Renal failure chronic [Unknown]
